FAERS Safety Report 6769783-X (Version None)
Quarter: 2010Q2

REPORT INFORMATION
  Report Type: 
  Country: None (occurrence: None)
  Receive Date: 20100615
  Receipt Date: 20100601
  Transmission Date: 20101027
  Serious: Yes (Hospitalization)
  Sender: FDA-Public Use
  Company Number: US-ROCHE-709000

PATIENT
  Sex: Female
  Weight: 59 kg

DRUGS (3)
  1. CAPECITABINE [Suspect]
     Indication: GASTRIC CANCER
     Dosage: FREQUENCY: DAY 1-14
     Route: 048
     Dates: start: 20091221
  2. OXALIPLATIN [Suspect]
     Indication: GASTRIC CANCER
     Dosage: FREQUENCY: DAY 1 EACH CYCLE
     Route: 042
     Dates: start: 20091221
  3. CETUXIMAB [Suspect]
     Indication: GASTRIC CANCER
     Dosage: FREQUENCY: DAY 1, 8, 15 EACH CYCLE
     Route: 042
     Dates: start: 20091221

REACTIONS (2)
  - FRACTURED SACRUM [None]
  - LUMBAR VERTEBRAL FRACTURE [None]
